FAERS Safety Report 10005881 (Version 2)
Quarter: 2014Q2

REPORT INFORMATION
  Report Type: Spontaneous
  Country: US (occurrence: US)
  Receive Date: 20140313
  Receipt Date: 20140430
  Transmission Date: 20141212
  Serious: No
  Sender: FDA-Public Use
  Company Number: US-009507513-1402USA012171

PATIENT
  Age: 26 Year
  Sex: Female
  Weight: 164.63 kg

DRUGS (3)
  1. NEXPLANON [Suspect]
     Dosage: LEFT ARM
     Route: 059
     Dates: start: 20131223, end: 20131224
  2. NEXPLANON [Suspect]
     Dosage: LEFT ARM
     Route: 059
     Dates: start: 20131224, end: 20140407
  3. NEXPLANON [Suspect]
     Dosage: UNK
     Route: 059
     Dates: start: 201404

REACTIONS (4)
  - Device expulsion [Recovered/Resolved]
  - Device kink [Recovered/Resolved]
  - Device breakage [Recovered/Resolved]
  - No adverse event [Unknown]
